FAERS Safety Report 7562590-X (Version None)
Quarter: 2011Q2

REPORT INFORMATION
  Report Type: 
  Country: None (occurrence: None)
  Receive Date: 20110614
  Receipt Date: 20110411
  Transmission Date: 20111010
  Serious: No
  Sender: FDA-Public Use
  Company Number: 2011S1007553

PATIENT
  Age: 17 Year
  Sex: Male

DRUGS (1)
  1. CLINDAMYCIN AND BENZOYL PEROXIDE [Suspect]
     Dosage: PCT; TOPICAL
     Route: 061
     Dates: start: 20110301, end: 20110301

REACTIONS (2)
  - APPLICATION SITE ERYTHEMA [None]
  - ERYTHEMA [None]
